FAERS Safety Report 4283225-8 (Version None)
Quarter: 2004Q1

REPORT INFORMATION
  Report Type: 
  Country: None (occurrence: None)
  Receive Date: 20040129
  Receipt Date: 20040119
  Transmission Date: 20041129
  Serious: Yes (Other)
  Sender: FDA-Public Use
  Company Number: GB-JNJFOC-20040103541

PATIENT
  Age: 47 Year
  Sex: Female

DRUGS (2)
  1. RISPERDAL [Suspect]
     Dosage: 12 MG, IN 1 DAY, ORAL
     Route: 048
  2. ZOPICLONE (ZOPICLONE) [Concomitant]

REACTIONS (1)
  - NEUTROPENIA [None]
